FAERS Safety Report 4984524-4 (Version None)
Quarter: 2006Q2

REPORT INFORMATION
  Report Type: 
  Country: None (occurrence: None)
  Receive Date: 20060421
  Receipt Date: 20060408
  Transmission Date: 20061013
  Serious: Yes (Hospitalization)
  Sender: FDA-Public Use
  Company Number: GXKR2006IT01998

PATIENT
  Age: 45 Year
  Sex: Female

DRUGS (2)
  1. TICLOPIDINE (NGX) (TICLOPIDINE) [Suspect]
     Indication: ATRIAL FIBRILLATION
     Dosage: 250 MG, QD, ORAL
     Route: 048
  2. NIMESULIDE (NIMESULIDE) [Concomitant]

REACTIONS (4)
  - CHOLESTASIS [None]
  - HEPATOTOXICITY [None]
  - RENAL FAILURE ACUTE [None]
  - THROMBOCYTOPENIA [None]
